FAERS Safety Report 14333159 (Version 1)
Quarter: 2017Q4

REPORT INFORMATION
  Report Type: Report from Study
  Country: US (occurrence: US)
  Receive Date: 20171228
  Receipt Date: 20171228
  Transmission Date: 20180321
  Serious: Yes (Other)
  Sender: FDA-Public Use
  Company Number: US-PFIZER INC-2017547281

PATIENT

DRUGS (1)
  1. XALKORI [Suspect]
     Active Substance: CRIZOTINIB
     Dosage: 250 MG, UNK
     Dates: start: 20150303

REACTIONS (3)
  - Diplopia [Unknown]
  - Rash pruritic [Unknown]
  - Photopsia [Unknown]

NARRATIVE: CASE EVENT DATE: 20150408
